FAERS Safety Report 8303664-5 (Version None)
Quarter: 2012Q2

REPORT INFORMATION
  Report Type: 
  Country: None (occurrence: None)
  Receive Date: 20120423
  Receipt Date: 20120417
  Transmission Date: 20120825
  Serious: Yes (Other)
  Sender: FDA-Public Use
  Company Number: CA-PFIZER INC-CA-WYE-G05959510

PATIENT
  Age: 27 Year
  Sex: Male

DRUGS (6)
  1. ACETYLSALICYLIC ACID [Concomitant]
     Dosage: UNK
  2. ACETAMINOPHEN [Concomitant]
     Dosage: UNK
  3. EFFEXOR XR [Suspect]
     Dosage: UNK
  4. GABAPENTIN [Concomitant]
     Dosage: UNK
  5. DURAGESIC-100 [Suspect]
     Dosage: UNK
  6. BUPROPION HYDROCHLORIDE [Concomitant]
     Dosage: UNK

REACTIONS (8)
  - SEROTONIN SYNDROME [None]
  - PSYCHOMOTOR HYPERACTIVITY [None]
  - MUSCULOSKELETAL STIFFNESS [None]
  - NERVOUSNESS [None]
  - ABDOMINAL DISCOMFORT [None]
  - HYPERHIDROSIS [None]
  - MYDRIASIS [None]
  - DIARRHOEA [None]
